FAERS Safety Report 12297546 (Version 1)
Quarter: 2016Q2

REPORT INFORMATION
  Report Type: Spontaneous
  Country: US (occurrence: US)
  Receive Date: 20160422
  Receipt Date: 20160422
  Transmission Date: 20160815
  Serious: Yes (Other)
  Sender: FDA-Public Use
  Company Number: US-TEVA-653655USA

PATIENT
  Age: 60 Year
  Sex: Female
  Weight: 72.64 kg

DRUGS (4)
  1. TREANDA [Suspect]
     Active Substance: BENDAMUSTINE HYDROCHLORIDE
     Indication: NON-HODGKIN^S LYMPHOMA STAGE IV
     Dosage: 6 CYCLES
     Route: 065
     Dates: start: 201506
  2. RITUXAN [Suspect]
     Active Substance: RITUXIMAB
     Indication: NON-HODGKIN^S LYMPHOMA STAGE IV
     Dosage: 6 CYCLES
     Route: 065
     Dates: start: 201506
  3. CHEMOTHERAPY DRUGS [Suspect]
     Active Substance: UNSPECIFIED INGREDIENT
     Route: 065
  4. GABAPENTIN. [Suspect]
     Active Substance: GABAPENTIN
     Route: 065

REACTIONS (10)
  - Rash pruritic [Not Recovered/Not Resolved]
  - Skin reaction [Not Recovered/Not Resolved]
  - Rash [Not Recovered/Not Resolved]
  - Neurodermatitis [Not Recovered/Not Resolved]
  - Weight fluctuation [Not Recovered/Not Resolved]
  - Blood immunoglobulin M decreased [Unknown]
  - Non-Hodgkin^s lymphoma recurrent [Recovered/Resolved]
  - White blood cell count decreased [Unknown]
  - Blood immunoglobulin G decreased [Unknown]
  - Erythema [Not Recovered/Not Resolved]

NARRATIVE: CASE EVENT DATE: 201506
